FAERS Safety Report 8776256 (Version 4)
Quarter: 2013Q2

REPORT INFORMATION
  Report Type: Spontaneous
  Country: JP (occurrence: JP)
  Receive Date: 20120910
  Receipt Date: 20130524
  Transmission Date: 20140414
  Serious: Yes (Other)
  Sender: FDA-Public Use
  Company Number: JP-ASTRAZENECA-2012SE69423

PATIENT
  Age: 4 Year
  Sex: Female
  Weight: 15 kg

DRUGS (1)
  1. XYLOCAINE JELLY [Suspect]
     Indication: ANALGESIC THERAPY
     Route: 003
     Dates: start: 201208, end: 201208

REACTIONS (6)
  - Overdose [Unknown]
  - Aphasia [Recovered/Resolved]
  - Electroencephalogram abnormal [Recovered/Resolved]
  - Convulsion [Recovered/Resolved]
  - Altered state of consciousness [Recovered/Resolved]
  - Intentional drug misuse [Unknown]
